FAERS Safety Report 5135802-X (Version None)
Quarter: 2006Q4

REPORT INFORMATION
  Report Type: 
  Country: None (occurrence: None)
  Receive Date: 20061024
  Receipt Date: 20061024
  Transmission Date: 20070319
  Serious: Yes (Death)
  Sender: FDA-Public Use
  Company Number: None

PATIENT
  Age: 71 Year
  Sex: Male

DRUGS (1)
  1. COUMADIN [Suspect]
     Dosage: 3 MG QD PO
     Route: 048

REACTIONS (8)
  - BLOOD PRESSURE INCREASED [None]
  - BRAIN DEATH [None]
  - BRAIN SCAN ABNORMAL [None]
  - CEREBRAL HAEMORRHAGE [None]
  - COMA [None]
  - DYSARTHRIA [None]
  - HEMIPARESIS [None]
  - PUPIL FIXED [None]
